FAERS Safety Report 18495363 (Version 1)
Quarter: 2020Q4

REPORT INFORMATION
  Report Type: Spontaneous
  Country: US (occurrence: US)
  Receive Date: 20201110
  Receipt Date: 20201110
  Transmission Date: 20210114
  Serious: Yes (Other)
  Sender: FDA-Public Use
  Company Number: None

PATIENT
  Age: 32 Year
  Sex: Male
  Weight: 90.9 kg

DRUGS (2)
  1. CEFTRIAXONE. [Suspect]
     Active Substance: CEFTRIAXONE
     Indication: EXPOSURE TO COMMUNICABLE DISEASE
     Route: 030
     Dates: start: 20201110, end: 20201110
  2. STERILE WATER [Suspect]
     Active Substance: WATER
     Indication: EXPOSURE TO COMMUNICABLE DISEASE
     Route: 030
     Dates: start: 20201110, end: 20201110

REACTIONS (2)
  - Hypotension [None]
  - Hyperhidrosis [None]

NARRATIVE: CASE EVENT DATE: 20201110
